FAERS Safety Report 10707181 (Version 1)
Quarter: 2015Q1

REPORT INFORMATION
  Report Type: Spontaneous
  Country: US (occurrence: None)
  Receive Date: 20150112
  Receipt Date: 20150112
  Transmission Date: 20150721
  Serious: Yes (Disabling, Other)
  Sender: FDA-Public Use
  Company Number: None

PATIENT
  Age: 3 Year
  Sex: Female

DRUGS (1)
  1. MIRALAX [Suspect]
     Active Substance: POLYETHYLENE GLYCOL 3350
     Indication: CONSTIPATION
     Dosage: CAPFUL
     Route: 048

REACTIONS (5)
  - Mania [None]
  - Obsessive-compulsive disorder [None]
  - Agitation [None]
  - Depressed mood [None]
  - Product quality issue [None]

NARRATIVE: CASE EVENT DATE: 20120111
